FAERS Safety Report 7290330-0 (Version None)
Quarter: 2011Q1

REPORT INFORMATION
  Report Type: 
  Country: None (occurrence: None)
  Receive Date: 20110214
  Receipt Date: 20110204
  Transmission Date: 20110831
  Serious: Yes (Disabling)
  Sender: FDA-Public Use
  Company Number: PHHY2011FI09458

PATIENT
  Sex: Female

DRUGS (3)
  1. LAMICTAL [Concomitant]
     Indication: EPILEPSY
     Dosage: UNK
     Dates: start: 20040101
  2. TRILEPTAL [Suspect]
     Indication: EPILEPSY
     Dosage: 600 MG, BID
     Dates: start: 19800101
  3. DEPRAKINE [Concomitant]
     Indication: EPILEPSY
     Dosage: UNK
     Dates: start: 19810101, end: 19820101

REACTIONS (1)
  - POLYNEUROPATHY [None]
